FAERS Safety Report 5635802-7 (Version None)
Quarter: 2008Q1

REPORT INFORMATION
  Report Type: 
  Country: None (occurrence: None)
  Receive Date: 20080221
  Receipt Date: 20080213
  Transmission Date: 20080703
  Serious: Yes (Hospitalization, Other)
  Sender: FDA-Public Use
  Company Number: 2008EN000019

PATIENT
  Age: 4 Year
  Sex: Male

DRUGS (1)
  1. ADAGEN [Suspect]
     Indication: COMBINED IMMUNODEFICIENCY
     Dates: start: 20071101

REACTIONS (6)
  - BLOOD ALKALINE PHOSPHATASE INCREASED [None]
  - CHOLANGITIS SCLEROSING [None]
  - DIARRHOEA [None]
  - GAMMA-GLUTAMYLTRANSFERASE INCREASED [None]
  - LIVER FUNCTION TEST ABNORMAL [None]
  - TRANSAMINASES INCREASED [None]
